FAERS Safety Report 9664908 (Version 1)
Quarter: 2013Q4

REPORT INFORMATION
  Report Type: Spontaneous
  Country: BR (occurrence: None)
  Receive Date: 20131031
  Receipt Date: 20131031
  Transmission Date: 20140711
  Serious: Yes (Other)
  Sender: FDA-Public Use
  Company Number: 7244616

PATIENT
  Age: 60 Year
  Sex: Female

DRUGS (1)
  1. LEVOTHYROXINE SODIUM [Suspect]
     Indication: THYROID DISORDER
     Dates: start: 20131015, end: 20131015

REACTIONS (3)
  - Blood pressure increased [None]
  - Dizziness [None]
  - Visual acuity reduced [None]
